FAERS Safety Report 7413498-1 (Version None)
Quarter: 2011Q2

REPORT INFORMATION
  Report Type: 
  Country: None (occurrence: None)
  Receive Date: 20110413
  Receipt Date: 20110406
  Transmission Date: 20111010
  Serious: Yes (Hospitalization)
  Sender: FDA-Public Use
  Company Number: PHHY2011US29360

PATIENT
  Age: 27 Year
  Sex: Female

DRUGS (1)
  1. TOBI [Suspect]
     Dosage: 300 MG, BID, 28 DAYS ON 28 DAYS OFF
     Dates: start: 20110228, end: 20110324

REACTIONS (1)
  - UPPER RESPIRATORY TRACT INFECTION [None]
